FAERS Safety Report 10602644 (Version 1)
Quarter: 2014Q4

REPORT INFORMATION
  Report Type: Spontaneous
  Country: DE (occurrence: DE)
  Receive Date: 20141124
  Receipt Date: 20141124
  Transmission Date: 20150529
  Serious: Yes (Hospitalization, Other)
  Sender: FDA-Public Use
  Company Number: DE-GLAXOSMITHKLINE-DE2014GSK022484

PATIENT
  Sex: Female

DRUGS (2)
  1. RELVAR ELLIPTA [Suspect]
     Active Substance: FLUTICASONE FUROATE\VILANTEROL TRIFENATATE
     Indication: ASTHMA
     Dosage: UNK
     Route: 055
  2. CORTISON [Suspect]
     Active Substance: CORTISONE ACETATE
     Indication: ASTHMA
     Route: 042

REACTIONS (2)
  - Pulmonary embolism [Unknown]
  - Therapeutic response unexpected [Unknown]
